FAERS Safety Report 13608048 (Version 1)
Quarter: 2017Q2

REPORT INFORMATION
  Report Type: Report from Study
  Country: US (occurrence: BR)
  Receive Date: 20170602
  Receipt Date: 20170602
  Transmission Date: 20170830
  Serious: Yes (Other)
  Sender: FDA-Public Use
  Company Number: US-SUNOVION-2017SUN002334

PATIENT
  Sex: Female
  Weight: 51 kg

DRUGS (1)
  1. INDACATEROL AND GLYCOPYRROLATE [Suspect]
     Active Substance: GLYCOPYRROLATE\INDACATEROL MALEATE
     Indication: BREAST CANCER
     Dosage: 1 DF, QD
     Route: 055

REACTIONS (2)
  - Lung neoplasm malignant [Unknown]
  - Product use in unapproved indication [Unknown]
